FAERS Safety Report 4492673-2 (Version None)
Quarter: 2004Q4

REPORT INFORMATION
  Report Type: 
  Country: None (occurrence: None)
  Receive Date: 20041028
  Receipt Date: 20041018
  Transmission Date: 20050328
  Serious: Yes (Other)
  Sender: FDA-Public Use
  Company Number: 200410259BBE

PATIENT
  Age: 15 Year
  Sex: Male

DRUGS (16)
  1. KOATE [Suspect]
     Indication: FACTOR VIII DEFICIENCY
     Dates: start: 19790101
  2. KOATE [Suspect]
     Indication: FACTOR VIII DEFICIENCY
     Dates: start: 19810101
  3. KOATE [Suspect]
     Indication: FACTOR VIII DEFICIENCY
     Dates: start: 19820101
  4. KOATE [Suspect]
     Indication: FACTOR VIII DEFICIENCY
     Dates: start: 19830101
  5. KOATE [Suspect]
     Indication: FACTOR VIII DEFICIENCY
     Dates: start: 19840101
  6. KOATE [Suspect]
     Indication: FACTOR VIII DEFICIENCY
     Dates: start: 19850101
  7. HEMOFIL [Suspect]
     Indication: FACTOR VIII DEFICIENCY
     Dates: start: 19760101
  8. HEMOFIL [Suspect]
     Indication: FACTOR VIII DEFICIENCY
     Dates: start: 19770101
  9. HEMOFIL [Suspect]
     Indication: FACTOR VIII DEFICIENCY
     Dates: start: 19780101
  10. HEMOFIL [Suspect]
     Indication: FACTOR VIII DEFICIENCY
     Dates: start: 19790101
  11. HEMOFIL [Suspect]
     Indication: FACTOR VIII DEFICIENCY
     Dates: start: 19810101
  12. FACTORATE (FACTOR VIII (ANTIHAEMOPHILIC FACTOR)) [Suspect]
     Indication: FACTOR VIII DEFICIENCY
     Dates: start: 19790101
  13. FACTORATE (FACTOR VIII (ANTIHAEMOPHILIC FACTOR)) [Suspect]
     Indication: FACTOR VIII DEFICIENCY
     Dates: start: 19800101
  14. PROFILATE [Suspect]
     Indication: FACTOR VIII DEFICIENCY
     Dates: start: 19800101
  15. PROFILATE [Suspect]
     Indication: FACTOR VIII DEFICIENCY
     Dates: start: 19820101
  16. PROFILATE [Suspect]
     Indication: FACTOR VIII DEFICIENCY
     Dates: start: 19860101

REACTIONS (2)
  - HEPATITIS C [None]
  - HIV INFECTION [None]
